FAERS Safety Report 5056419-1 (Version None)
Quarter: 2006Q3

REPORT INFORMATION
  Report Type: 
  Country: None (occurrence: None)
  Receive Date: 20060720
  Receipt Date: 20060627
  Transmission Date: 20061208
  Serious: Yes (Other)
  Sender: FDA-Public Use
  Company Number: SG-GLAXOSMITHKLINE-B0430466A

PATIENT
  Age: 21 Year
  Sex: Female
  Weight: 50 kg

DRUGS (2)
  1. ACETAMINOPHEN [Suspect]
     Indication: INTENTIONAL OVERDOSE
     Dosage: 120TAB SINGLE DOSE
     Route: 048
     Dates: start: 20050621
  2. CODEINE COUGH SYRUP [Suspect]
     Indication: INTENTIONAL OVERDOSE
     Dosage: 360MG SINGLE DOSE
     Route: 048
     Dates: start: 20050621

REACTIONS (2)
  - INTENTIONAL OVERDOSE [None]
  - NAUSEA [None]
